FAERS Safety Report 13340222 (Version 2)
Quarter: 2017Q2

REPORT INFORMATION
  Report Type: Spontaneous
  Country: GN (occurrence: GN)
  Receive Date: 20170316
  Receipt Date: 20170426
  Transmission Date: 20170830
  Serious: Yes (Death)
  Sender: FDA-Public Use
  Company Number: GN-BIOGEN-2015BI071393

PATIENT
  Age: 20 Year
  Sex: Male

DRUGS (18)
  1. AVONEX [Suspect]
     Active Substance: INTERFERON BETA-1A
     Indication: EBOLA DISEASE
     Route: 058
     Dates: start: 20150513, end: 20150521
  2. GLUCOSE 50% [Concomitant]
     Active Substance: DEXTROSE
     Indication: HYPOGLYCAEMIA
     Route: 065
     Dates: start: 20150519, end: 20150522
  3. VOGALENE [Concomitant]
     Active Substance: METOPIMAZINE
     Indication: PRODUCT USED FOR UNKNOWN INDICATION
     Route: 042
  4. PARACETAMOL [Concomitant]
     Active Substance: ACETAMINOPHEN
     Indication: PAIN
  5. OMEPRAZOLE. [Concomitant]
     Active Substance: OMEPRAZOLE
     Indication: ABDOMINAL PAIN UPPER
     Route: 048
     Dates: start: 20150514, end: 20150519
  6. METOCLOPRAMIDE. [Concomitant]
     Active Substance: METOCLOPRAMIDE
     Indication: VOMITING
     Route: 042
     Dates: start: 20150514, end: 20150517
  7. NOVALGIN [Concomitant]
     Active Substance: METAMIZOLE SODIUM
     Indication: PRODUCT USED FOR UNKNOWN INDICATION
     Route: 042
  8. CEFIXIME. [Concomitant]
     Active Substance: CEFIXIME
     Indication: ANTIBIOTIC THERAPY
     Route: 048
     Dates: start: 20150511, end: 20150515
  9. COARTEM [Concomitant]
     Active Substance: ARTEMETHER\LUMEFANTRINE
     Indication: MALARIA PROPHYLAXIS
     Route: 048
     Dates: start: 20150511, end: 20150514
  10. METRONIDAZOLE. [Concomitant]
     Active Substance: METRONIDAZOLE
     Indication: DIARRHOEA
     Route: 042
     Dates: start: 20150514, end: 20150520
  11. TRAMADOL. [Concomitant]
     Active Substance: TRAMADOL
     Indication: PRODUCT USED FOR UNKNOWN INDICATION
     Route: 042
  12. VITAMIN C [Concomitant]
     Active Substance: ASCORBIC ACID
     Indication: PRODUCT USED FOR UNKNOWN INDICATION
     Route: 042
  13. OMEPRAZOLE. [Concomitant]
     Active Substance: OMEPRAZOLE
     Route: 042
  14. LACTATED RINGERS [Concomitant]
     Active Substance: CALCIUM CHLORIDE\POTASSIUM CHLORIDE\SODIUM CHLORIDE\SODIUM LACTATE
     Indication: DIARRHOEA
     Route: 042
     Dates: start: 20150513, end: 20150522
  15. CEFTRIAXONE. [Concomitant]
     Active Substance: CEFTRIAXONE
     Indication: ANTIBIOTIC THERAPY
     Route: 042
     Dates: start: 20150517, end: 20150522
  16. PARACETAMOL [Concomitant]
     Active Substance: ACETAMINOPHEN
     Indication: PYREXIA
     Route: 048
     Dates: start: 20150513, end: 20150522
  17. VITAMIN B COMPLEX [Concomitant]
     Active Substance: CYANOCOBALAMIN\DEXPANTHENOL\NIACINAMIDE\PYRIDOXINE HYDROCHLORIDE\RIBOFLAVIN 5^-PHOSPHATE SODIUM\THIAMINE HYDROCHLORIDE\VITAMIN B COMPLEX
     Indication: PRODUCT USED FOR UNKNOWN INDICATION
     Route: 065
  18. LACTATED RINGERS [Concomitant]
     Active Substance: CALCIUM CHLORIDE\POTASSIUM CHLORIDE\SODIUM CHLORIDE\SODIUM LACTATE
     Indication: VOMITING

REACTIONS (1)
  - Respiratory distress [Fatal]

NARRATIVE: CASE EVENT DATE: 20150521
